FAERS Safety Report 23971794 (Version 3)
Quarter: 2024Q3

REPORT INFORMATION
  Report Type: Spontaneous
  Country: NL (occurrence: NL)
  Receive Date: 20240613
  Receipt Date: 20240830
  Transmission Date: 20241017
  Serious: No
  Sender: PFIZER
  Company Number: NL-PFIZER INC-202400189037

PATIENT

DRUGS (1)
  1. DEPO-PROVERA [Suspect]
     Active Substance: MEDROXYPROGESTERONE ACETATE
     Indication: Contraception
     Dosage: UNK

REACTIONS (1)
  - Device leakage [Unknown]
